FAERS Safety Report 9791436 (Version 3)
Quarter: 2014Q1

REPORT INFORMATION
  Report Type: Spontaneous
  Country: JP (occurrence: JP)
  Receive Date: 20140101
  Receipt Date: 20140129
  Transmission Date: 20141002
  Serious: Yes (Hospitalization)
  Sender: FDA-Public Use
  Company Number: PHHY2013JP152955

PATIENT
  Sex: Male

DRUGS (6)
  1. BASILIXIMAB [Suspect]
     Indication: RENAL TRANSPLANT
     Dosage: 20 MG, UNK
     Route: 042
     Dates: start: 20121201
  2. MYCOPHENOLATE MOFETIL [Suspect]
  3. PREDNISOLONE [Suspect]
     Dosage: 60 MG, UNK
  4. PREDNISOLONE [Suspect]
     Dosage: 50 MG, UNK
  5. PREDNISOLONE [Suspect]
     Dosage: 10 MG, UNK
  6. TACROLIMUS [Suspect]

REACTIONS (10)
  - Transplant rejection [Recovered/Resolved]
  - Renal haematoma [Recovered/Resolved]
  - Herpes virus infection [Recovered/Resolved]
  - Pyelonephritis [Recovered/Resolved]
  - Renal tubular necrosis [Recovering/Resolving]
  - Anuria [Unknown]
  - Pancytopenia [Unknown]
  - Complications of transplanted kidney [Unknown]
  - Post procedural complication [Unknown]
  - Drug ineffective [Unknown]
